FAERS Safety Report 9275353 (Version 3)
Quarter: 2014Q4

REPORT INFORMATION
  Report Type: Spontaneous
  Country: US (occurrence: US)
  Receive Date: 20130507
  Receipt Date: 20141204
  Transmission Date: 20150529
  Serious: Yes (Other)
  Sender: FDA-Public Use
  Company Number: US-BAYER-2013-054503

PATIENT
  Age: 32 Year
  Sex: Female

DRUGS (12)
  1. MIRENA [Suspect]
     Active Substance: LEVONORGESTREL
     Indication: CONTRACEPTION
     Dosage: 20 MCG/24HR, CONT
     Route: 015
     Dates: start: 20110423, end: 20110425
  2. SEROQUEL [Concomitant]
     Active Substance: QUETIAPINE FUMARATE
     Route: 048
  3. AMBIEN [Concomitant]
     Active Substance: ZOLPIDEM TARTRATE
     Route: 048
  4. PYRIDIUM [Concomitant]
     Active Substance: PHENAZOPYRIDINE
     Indication: DYSURIA
     Dosage: 200 MG -? [THREE TIMES /DAY
     Route: 048
     Dates: start: 20110502
  5. PRISTIQ EXTENDED RELEASE [Concomitant]
     Active Substance: DESVENLAFAXINE SUCCINATE
     Dosage: 50
     Route: 048
     Dates: start: 20110421
  6. RISPERDAL [Concomitant]
     Active Substance: RISPERIDONE
     Dosage: 0.5
     Route: 048
  7. XANAX [Concomitant]
     Active Substance: ALPRAZOLAM
     Dosage: UNK UNK, PRN
     Route: 048
  8. DITROPAN [Concomitant]
     Active Substance: OXYBUTYNIN CHLORIDE
  9. MIRENA [Suspect]
     Active Substance: LEVONORGESTREL
     Indication: CONTRACEPTION
     Dosage: 20 MCG/24HR, CONT
     Route: 015
     Dates: start: 20110425, end: 20110506
  10. BACTRIM [Concomitant]
     Active Substance: SULFAMETHOXAZOLE\TRIMETHOPRIM
     Indication: URINARY TRACT INFECTION
     Dosage: 1 TWICE PER DAY
     Route: 048
     Dates: start: 20110502
  11. OXYBUTYNIN [Concomitant]
     Active Substance: OXYBUTYNIN
  12. IBUPROFEN. [Concomitant]
     Active Substance: IBUPROFEN

REACTIONS (5)
  - Injury [None]
  - Fear of disease [None]
  - Injury associated with device [None]
  - Emotional distress [None]
  - Pain [None]
